FAERS Safety Report 15355682 (Version 4)
Quarter: 2019Q3

REPORT INFORMATION
  Report Type: Report from Study
  Country: US (occurrence: US)
  Receive Date: 20180906
  Receipt Date: 20190827
  Transmission Date: 20191004
  Serious: Yes (Hospitalization, Other)
  Sender: FDA-Public Use
  Company Number: US-TESARO, INC.-US-2018TSO04137

PATIENT
  Sex: Female
  Weight: 112.47 kg

DRUGS (5)
  1. ZEJULA [Suspect]
     Active Substance: NIRAPARIB
     Dosage: 200 MG, QHS (BEDTIME)
     Dates: start: 20180918
  2. ZEJULA [Suspect]
     Active Substance: NIRAPARIB
     Dosage: 100 MG, QD
     Route: 048
     Dates: start: 20180817, end: 20180917
  3. ZEJULA [Suspect]
     Active Substance: NIRAPARIB
     Dosage: ALTERNATING DOSING, QOD WITH 100MG/200MG
     Dates: start: 20190701
  4. ZEJULA [Suspect]
     Active Substance: NIRAPARIB
     Indication: METASTATIC NEOPLASM
     Dosage: 300 MG, QD
     Route: 048
     Dates: start: 201805, end: 20180806
  5. ZEJULA [Suspect]
     Active Substance: NIRAPARIB
     Dosage: UNK
     Dates: start: 20190101, end: 20190630

REACTIONS (11)
  - Somnolence [Unknown]
  - Product use in unapproved indication [Unknown]
  - Appendicitis [Unknown]
  - Arthritis [Unknown]
  - Fatigue [Recovering/Resolving]
  - Blood creatinine increased [Not Recovered/Not Resolved]
  - Renal disorder [Not Recovered/Not Resolved]
  - Muscular weakness [Unknown]
  - Pruritus [Recovering/Resolving]
  - Inappropriate schedule of product administration [Unknown]
  - Urinary tract infection [Unknown]

NARRATIVE: CASE EVENT DATE: 2019
